FAERS Safety Report 5040450-6 (Version None)
Quarter: 2006Q2

REPORT INFORMATION
  Report Type: 
  Country: None (occurrence: None)
  Receive Date: 20060627
  Receipt Date: 20060627
  Transmission Date: 20061013
  Serious: No
  Sender: FDA-Public Use
  Company Number: None

PATIENT
  Age: 35 Year
  Sex: Female
  Weight: 52.1637 kg

DRUGS (1)
  1. DEMEROL [Suspect]
     Dosage: 25 MG ONCE IV
     Route: 042
     Dates: start: 20060419, end: 20060419

REACTIONS (2)
  - PRURITUS [None]
  - RASH ERYTHEMATOUS [None]
